FAERS Safety Report 9633276 (Version 2)
Quarter: 2013Q4

REPORT INFORMATION
  Report Type: Spontaneous
  Country: GB (occurrence: None)
  Receive Date: 20131017
  Receipt Date: 20131028
  Transmission Date: 20140711
  Serious: Yes (Hospitalization, Other)
  Sender: FDA-Public Use
  Company Number: 1943542

PATIENT
  Age: 61 Year
  Sex: Male
  Weight: 91.2 kg

DRUGS (7)
  1. GEMCITABINE HYDROCHLORIDE [Suspect]
     Indication: PANCREATIC CARCINOMA
     Dosage: 2128 MG MILLIGRAMS INTRAVENOUS (NOT OTHERWISE SPECIFIED)?
     Route: 042
     Dates: start: 20130830, end: 20130906
  2. ALLOPURINOL [Concomitant]
  3. AMYLASE W/LIPASE/PROTEASE [Concomitant]
  4. AMITRIPTYLINE [Concomitant]
  5. LANSOPRAZOLE [Concomitant]
  6. INDOMETHACIN [Concomitant]
  7. PARACETAMOL [Concomitant]

REACTIONS (4)
  - Biliary dilatation [None]
  - Malaise [None]
  - Hepatic failure [None]
  - Hepatotoxicity [None]
